FAERS Safety Report 8724094 (Version 2)
Quarter: 2012Q4

REPORT INFORMATION
  Report Type: 
  Country: US (occurrence: US)
  Receive Date: 20120815
  Receipt Date: 20120829
  Transmission Date: 20130627
  Serious: Yes (Other)
  Sender: FDA-Public Use
  Company Number: US-PFIZER INC-2012198446

PATIENT
  Age: 63 Year
  Sex: Female
  Weight: 82 kg

DRUGS (5)
  1. CELEBREX [Suspect]
     Indication: OSTEOARTHRITIS
     Dosage: UNK
     Dates: start: 2003
  2. CELEBREX [Suspect]
     Dosage: 200 mg, DAILY
     Dates: end: 2010
  3. AMLODIPINE BESILATE [Concomitant]
     Indication: HYPERTENSION
     Dosage: 10 mg, daily
  4. BENAZEPRIL HYDROCHLORIDE [Concomitant]
     Indication: HYPERTENSION
     Dosage: 20 mg, daily
  5. MAXZIDE [Concomitant]
     Indication: HYPERTENSION
     Dosage: 37.5/25 mg, daily

REACTIONS (1)
  - Arthropathy [Unknown]
